FAERS Safety Report 11049408 (Version 1)
Quarter: 2015Q2

REPORT INFORMATION
  Report Type: Spontaneous
  Country: US (occurrence: US)
  Receive Date: 20150420
  Receipt Date: 20150420
  Transmission Date: 20150821
  Serious: Yes (Other)
  Sender: FDA-Public Use
  Company Number: US-BAYER-2015-122290

PATIENT
  Age: 22 Year
  Sex: Female
  Weight: 63 kg

DRUGS (1)
  1. MIDOL [Suspect]
     Active Substance: IBUPROFEN

REACTIONS (5)
  - Tremor [Not Recovered/Not Resolved]
  - Intentional overdose [None]
  - Feeling hot [Not Recovered/Not Resolved]
  - Self injurious behaviour [None]
  - Somnolence [Not Recovered/Not Resolved]

NARRATIVE: CASE EVENT DATE: 20150408
